FAERS Safety Report 20731011 (Version 1)
Quarter: 2022Q2

REPORT INFORMATION
  Report Type: Spontaneous
  Country: FR (occurrence: FR)
  Receive Date: 20220420
  Receipt Date: 20220420
  Transmission Date: 20220721
  Serious: Yes (Hospitalization)
  Sender: FDA-Public Use
  Company Number: None

PATIENT
  Age: 75 Year
  Sex: Female

DRUGS (5)
  1. AMLODIPINE [Suspect]
     Active Substance: AMLODIPINE BESYLATE
     Indication: Product used for unknown indication
     Dosage: 10 MILLIGRAM, QD
     Route: 048
  2. PREGABALIN [Suspect]
     Active Substance: PREGABALIN
     Indication: Arthralgia
     Dosage: 50 MILLIGRAM, QD, LONG COURSE
     Route: 048
  3. LORMETAZEPAM [Suspect]
     Active Substance: LORMETAZEPAM
     Indication: Mixed anxiety and depressive disorder
     Dosage: 3 MILLIGRAM, QD, LONG COURSE
     Route: 048
  4. MORPHINE SULFATE [Suspect]
     Active Substance: MORPHINE SULFATE
     Indication: Arthralgia
     Dosage: 30 MILLIGRAM, QD, UP TO 6X5 MG/D
     Route: 048
     Dates: end: 202101
  5. SKENAN [Suspect]
     Active Substance: MORPHINE SULFATE
     Indication: Arthralgia
     Dosage: 60 MILLIGRAM, QD, LONG COURSE
     Route: 048
     Dates: end: 202101

REACTIONS (4)
  - Oedema peripheral [Recovering/Resolving]
  - Memory impairment [Recovering/Resolving]
  - Balance disorder [Recovering/Resolving]
  - Drug dependence [Recovering/Resolving]

NARRATIVE: CASE EVENT DATE: 20200701
